FAERS Safety Report 12894976 (Version 2)
Quarter: 2017Q4

REPORT INFORMATION
  Report Type: Spontaneous
  Country: FR (occurrence: FR)
  Receive Date: 20161028
  Receipt Date: 20171103
  Transmission Date: 20180320
  Serious: Yes (Other)
  Sender: FDA-Public Use
  Company Number: FR-ASTRAZENECA-2016SF11582

PATIENT
  Age: 30203 Day
  Sex: Female

DRUGS (21)
  1. VANCOMYCIN [Suspect]
     Active Substance: VANCOMYCIN
     Indication: HYPERTHERMIA
     Route: 042
     Dates: start: 20160928, end: 201609
  2. GENTAMICIN. [Suspect]
     Active Substance: GENTAMICIN
     Indication: HYPERTHERMIA
     Route: 042
     Dates: start: 20160928, end: 20160928
  3. ATARAX [Concomitant]
     Active Substance: HYDROXYZINE HYDROCHLORIDE
  4. INEXIUM [Suspect]
     Active Substance: ESOMEPRAZOLE
     Indication: GASTROOESOPHAGEAL REFLUX DISEASE
     Route: 048
     Dates: start: 20160927, end: 20161005
  5. DEPAMIDE [Concomitant]
     Active Substance: VALPROMIDE
  6. TAHOR [Concomitant]
     Active Substance: ATORVASTATIN CALCIUM
  7. BISOPROLOL [Concomitant]
     Active Substance: BISOPROLOL
  8. RAMIPRIL. [Concomitant]
     Active Substance: RAMIPRIL
  9. IPATROPIUM BROMIDE [Suspect]
     Active Substance: IPRATROPIUM BROMIDE
     Dosage: 0.5MG/2ML 1DF THREE TIMES A DAY
     Route: 055
     Dates: start: 20160928, end: 20161001
  10. VANCOMYCIN [Suspect]
     Active Substance: VANCOMYCIN
     Indication: HYPERTHERMIA
     Route: 042
     Dates: start: 201609
  11. ZYLORIC [Suspect]
     Active Substance: ALLOPURINOL
     Route: 048
     Dates: start: 2016, end: 20160927
  12. CEFTRIAXONE. [Suspect]
     Active Substance: CEFTRIAXONE
     Route: 042
     Dates: start: 20160927, end: 20161001
  13. SALBUTAMOL [Suspect]
     Active Substance: ALBUTEROL
     Dosage: 2.5MG/2.5ML 1DF THREE TIMES A DAY
     Route: 055
     Dates: start: 20160928, end: 20161001
  14. METRONIDAZOLE. [Suspect]
     Active Substance: METRONIDAZOLE
     Dosage: THREE TIMES A DAY
     Route: 042
     Dates: start: 20160928, end: 20161001
  15. FUROSEMIDE. [Concomitant]
     Active Substance: FUROSEMIDE
     Route: 048
  16. LEVOTHYROX [Concomitant]
     Active Substance: LEVOTHYROXINE
     Route: 048
  17. GAVISCON [Concomitant]
     Active Substance: ALUMINUM HYDROXIDE\MAGNESIUM CARBONATE
  18. PARACETAMOL [Suspect]
     Active Substance: ACETAMINOPHEN
     Indication: HYPERTHERMIA
     Route: 048
     Dates: start: 20160927, end: 20160930
  19. COLCHICINE. [Suspect]
     Active Substance: COLCHICINE
     Route: 048
     Dates: start: 201605, end: 20160927
  20. SERTRALINE [Concomitant]
     Active Substance: SERTRALINE HYDROCHLORIDE
     Route: 048
  21. ELIQUIS [Concomitant]
     Active Substance: APIXABAN
     Route: 048
     Dates: end: 20161008

REACTIONS (1)
  - Drug reaction with eosinophilia and systemic symptoms [Recovered/Resolved]

NARRATIVE: CASE EVENT DATE: 20160930
